FAERS Safety Report 6173213-9 (Version None)
Quarter: 2009Q2

REPORT INFORMATION
  Report Type: 
  Country: None (occurrence: None)
  Receive Date: 20090430
  Receipt Date: 20090417
  Transmission Date: 20091009
  Serious: Yes (Other)
  Sender: FDA-Public Use
  Company Number: US-PFIZER INC-2009203086

PATIENT
  Sex: Female
  Weight: 100.68 kg

DRUGS (1)
  1. CHANTIX [Suspect]
     Indication: SMOKING CESSATION THERAPY
     Dosage: 0.5 MG, 1X/DAY
     Dates: start: 20090415, end: 20090417

REACTIONS (3)
  - EYE SWELLING [None]
  - PRURITUS [None]
  - RASH MACULAR [None]
